FAERS Safety Report 9075181 (Version 1)
Quarter: 2013Q1

REPORT INFORMATION
  Report Type: Spontaneous
  Country: CA (occurrence: CA)
  Receive Date: 20130129
  Receipt Date: 20130129
  Transmission Date: 20140127
  Serious: Yes (Other)
  Sender: FDA-Public Use
  Company Number: CA-AMGEN-CANSP2011055708

PATIENT
  Age: 45 Year
  Sex: Female

DRUGS (10)
  1. ENBREL [Suspect]
     Indication: PRODUCT USED FOR UNKNOWN INDICATION
     Dosage: 25 MG, UNK
  2. ENBREL [Suspect]
     Dosage: 50 MG, QD
  3. ANTITHYMOCYTE IMMUNOGLOBULIN [Suspect]
     Dosage: 6 MG/KG, UNK
  4. MYCOPHENOLATE MOFETIL [Suspect]
     Dosage: 1000 MG, Q12H
     Route: 048
  5. PROGRAF [Suspect]
     Dosage: 2 MG, Q12H
     Route: 048
  6. PROGRAF [Suspect]
     Dosage: 3 MG, Q12H
     Route: 048
  7. PROGRAF [Suspect]
     Dosage: UNK
     Route: 065
  8. RAPAMUNE [Suspect]
     Dosage: UNK
     Route: 065
  9. REMICADE [Suspect]
     Route: 065
  10. ZENAPAX [Suspect]
     Dosage: UNK
     Route: 065

REACTIONS (2)
  - Alopecia [Not Recovered/Not Resolved]
  - Graft dysfunction [Not Recovered/Not Resolved]
